FAERS Safety Report 25893291 (Version 2)
Quarter: 2025Q4

REPORT INFORMATION
  Report Type: Spontaneous
  Country: US (occurrence: US)
  Receive Date: 20251008
  Receipt Date: 20251206
  Transmission Date: 20260118
  Serious: No
  Sender: SANOFI AVENTIS
  Company Number: US-SA-2025SA298339

PATIENT
  Sex: Male

DRUGS (2)
  1. DUPIXENT [Suspect]
     Active Substance: DUPILUMAB
     Indication: Asthma
     Dosage: 300 MG, QOW
     Route: 058
     Dates: start: 202312
  2. WEGOVY [Suspect]
     Active Substance: SEMAGLUTIDE
     Dosage: UNK

REACTIONS (2)
  - Dyspnoea [Unknown]
  - Drug hypersensitivity [Unknown]
